FAERS Safety Report 7269161-3 (Version None)
Quarter: 2011Q1

REPORT INFORMATION
  Report Type: 
  Country: None (occurrence: None)
  Receive Date: 20110202
  Receipt Date: 20110128
  Transmission Date: 20110831
  Serious: No
  Sender: FDA-Public Use
  Company Number: US-PFIZER INC-2011021087

PATIENT
  Sex: Female
  Weight: 68.027 kg

DRUGS (2)
  1. ADVIL [Suspect]
     Dosage: UNK
     Dates: start: 20100101
  2. METFORMIN [Concomitant]
     Indication: DIABETES MELLITUS
     Dosage: UNK

REACTIONS (3)
  - PRODUCTIVE COUGH [None]
  - THROAT IRRITATION [None]
  - FOREIGN BODY [None]
